FAERS Safety Report 5084000-7 (Version None)
Quarter: 2006Q3

REPORT INFORMATION
  Report Type: 
  Country: None (occurrence: None)
  Receive Date: 20060814
  Receipt Date: 20060803
  Transmission Date: 20061208
  Serious: Yes (Hospitalization, Disabling, Other)
  Sender: FDA-Public Use
  Company Number: TCI2005A04374

PATIENT
  Age: 77 Year
  Sex: Male

DRUGS (4)
  1. LEUPROLIDE ACETATE [Suspect]
     Indication: PROSTATE CANCER STAGE II
     Dosage: 3.75 MG (3.75 MG, 1 IN 28 D), SUBCUTANEOUS
     Route: 058
     Dates: start: 20050922, end: 20050922
  2. CASODEX [Suspect]
     Indication: PROSTATE CANCER STAGE II
     Dosage: 80  MG (80 MG, 1 IN 1 D), PER ORAL
     Route: 048
     Dates: start: 20050908
  3. CORTRIL (HYDROCORTISONE) (TABLETS) [Concomitant]
  4. LEVOTHYROXINE SODIUM [Concomitant]

REACTIONS (4)
  - HEMIANOPIA HETERONYMOUS [None]
  - PITUITARY HAEMORRHAGE [None]
  - VISUAL ACUITY REDUCED [None]
  - VISUAL FIELD DEFECT [None]
